FAERS Safety Report 24726747 (Version 2)
Quarter: 2024Q4

REPORT INFORMATION
  Report Type: Report from Study
  Country: US (occurrence: US)
  Receive Date: 20241212
  Receipt Date: 20241216
  Transmission Date: 20250115
  Serious: Yes (Hospitalization)
  Sender: ABBVIE
  Company Number: US-ABBVIE-6040299

PATIENT
  Age: 75 Year
  Sex: Female

DRUGS (3)
  1. SKYRIZI [Suspect]
     Active Substance: RISANKIZUMAB-RZAA
     Indication: Crohn^s disease
     Dosage: 1ST INFUSION
     Route: 042
     Dates: start: 20240923, end: 20240923
  2. SKYRIZI [Suspect]
     Active Substance: RISANKIZUMAB-RZAA
     Indication: Crohn^s disease
     Dosage: 2ND INFUSION
     Route: 042
     Dates: start: 2024, end: 2024
  3. SKYRIZI [Suspect]
     Active Substance: RISANKIZUMAB-RZAA
     Indication: Crohn^s disease
     Dosage: FINAL INFUSION
     Route: 042
     Dates: start: 20241118, end: 20241118

REACTIONS (9)
  - Asthma [Unknown]
  - Colitis [Unknown]
  - Upper respiratory tract infection [Recovered/Resolved]
  - Spinal pain [Recovered/Resolved]
  - Sciatica [Unknown]
  - Illness [Unknown]
  - Malaise [Unknown]
  - Musculoskeletal stiffness [Unknown]
  - Bronchitis [Unknown]

NARRATIVE: CASE EVENT DATE: 20240101
